FAERS Safety Report 16756627 (Version 2)
Quarter: 2019Q4

REPORT INFORMATION
  Report Type: Report from Study
  Country: FI (occurrence: FI)
  Receive Date: 20190829
  Receipt Date: 20191107
  Transmission Date: 20200122
  Serious: Yes (Hospitalization, Other)
  Sender: FDA-Public Use
  Company Number: FI-MYLANLABS-2019M1081150

PATIENT
  Age: 39 Year
  Sex: Male

DRUGS (12)
  1. ABSENOR                            /00228502/ [Concomitant]
     Dosage: 1500 MILLIGRAM, PM
     Dates: start: 2019
  2. PARACETAMOL [Concomitant]
     Active Substance: ACETAMINOPHEN
     Indication: PRODUCT USED FOR UNKNOWN INDICATION
     Dosage: 1000MILLIGRAM,QD(1-3TIMES/DAY,AS NEEDED)
  3. LEPONEX [Suspect]
     Active Substance: CLOZAPINE
     Dosage: 50 MILLIGRAM, AM
     Dates: start: 20190810, end: 20190903
  4. ABSENOR                            /00228502/ [Concomitant]
     Indication: PRODUCT USED FOR UNKNOWN INDICATION
     Dosage: LOWER DOSE [THAN 500 MG,1500 MG PER DAY]
     Dates: start: 20190701, end: 2019
  5. ABSENOR                            /00228502/ [Concomitant]
     Dosage: 500 MILLIGRAM, AM
     Dates: start: 2019
  6. LEPONEX [Suspect]
     Active Substance: CLOZAPINE
     Indication: SCHIZOPHRENIA
     Dosage: UNK
     Dates: start: 20190723, end: 20190802
  7. PEGORION [Concomitant]
     Active Substance: POLYETHYLENE GLYCOL 4000
     Indication: PRODUCT USED FOR UNKNOWN INDICATION
     Dosage: 12GRAM,QD (1-3TIMES/DAY, AS NEEDED)
  8. ZYPREXA [Concomitant]
     Active Substance: OLANZAPINE
     Indication: PRODUCT USED FOR UNKNOWN INDICATION
     Dosage: 5 MILLIGRAM, AM
     Dates: start: 20190802
  9. ZYPREXA [Concomitant]
     Active Substance: OLANZAPINE
     Dosage: 5 MILLIGRAM, PM
     Dates: start: 20190802
  10. LEPONEX [Suspect]
     Active Substance: CLOZAPINE
     Dosage: 150 MILLIGRAM, PM
     Dates: start: 20190810, end: 20190903
  11. MULTIVITA ASCORBIN LONG [Concomitant]
     Indication: PRODUCT USED FOR UNKNOWN INDICATION
     Dosage: 500 MILLIGRAM, QD
     Dates: start: 20190704
  12. BURANA [Concomitant]
     Active Substance: IBUPROFEN
     Indication: PRODUCT USED FOR UNKNOWN INDICATION
     Dosage: 600MILLIGRAM,QD (1-3TIMES/DAY,AS NEEDED)

REACTIONS (4)
  - Neutropenia [Unknown]
  - Sepsis [Unknown]
  - Gastroenteritis [Recovered/Resolved]
  - Eosinophilia [Recovered/Resolved]

NARRATIVE: CASE EVENT DATE: 201908
